FAERS Safety Report 7802109-9 (Version None)
Quarter: 2011Q4

REPORT INFORMATION
  Report Type: 
  Country: None (occurrence: None)
  Receive Date: 20111007
  Receipt Date: 20110929
  Transmission Date: 20120403
  Serious: No
  Sender: FDA-Public Use
  Company Number: US-B.I. PHARMACEUTICALS,INC./RIDGEFIELD-2011-BP-23176BP

PATIENT
  Age: 76 Year
  Sex: Female

DRUGS (7)
  1. MAGNESIUM [Concomitant]
     Indication: SUPPLEMENTATION THERAPY
     Dosage: 175 MG
     Route: 048
  2. LASIX [Concomitant]
     Indication: HYPERTENSION
     Dosage: 175 MG
     Route: 048
  3. CALCIUM CARBONATE [Concomitant]
     Indication: SUPPLEMENTATION THERAPY
     Dosage: 175 MG
     Route: 048
  4. ACTONEL [Concomitant]
     Indication: OSTEOPOROSIS
     Route: 048
  5. VIT D [Concomitant]
     Indication: SUPPLEMENTATION THERAPY
     Dosage: 175 MG
     Route: 048
  6. PRADAXA [Suspect]
     Indication: ATRIAL FIBRILLATION
     Dosage: 300 MG
     Route: 048
     Dates: start: 20110301
  7. SYNTHROID [Concomitant]
     Indication: HYPOTHYROIDISM
     Dosage: 175 MG
     Route: 048

REACTIONS (3)
  - DYSPEPSIA [None]
  - INSOMNIA [None]
  - INITIAL INSOMNIA [None]
